FAERS Safety Report 8919955 (Version 1)
Quarter: 2012Q4

REPORT INFORMATION
  Report Type: 
  Country: US (occurrence: US)
  Receive Date: 20121121
  Receipt Date: 20121121
  Transmission Date: 20130627
  Serious: Yes (Death, Hospitalization)
  Sender: FDA-Public Use
  Company Number: US-ACTELION-A-US2012-74643

PATIENT
  Age: 70 Year
  Sex: Male

DRUGS (3)
  1. TRACLEER [Suspect]
     Indication: PULMONARY ARTERIAL HYPERTENSION
     Dosage: UNK
     Route: 048
     Dates: end: 20121114
  2. COUMADIN [Concomitant]
  3. PLAVIX [Concomitant]

REACTIONS (4)
  - Cardiopulmonary failure [Fatal]
  - Respiratory failure [Fatal]
  - Lung disorder [Unknown]
  - Blood potassium increased [Unknown]
